FAERS Safety Report 9908341 (Version 1)
Quarter: 2014Q1

REPORT INFORMATION
  Report Type: Spontaneous
  Country: US (occurrence: None)
  Receive Date: 20140212
  Receipt Date: 20140212
  Transmission Date: 20141002
  Serious: Yes (Other)
  Sender: FDA-Public Use
  Company Number: None

PATIENT
  Age: 56 Year
  Sex: Female
  Weight: 78.93 kg

DRUGS (1)
  1. DULOXETINE [Suspect]
     Indication: DEPRESSION
     Dates: start: 20140107, end: 20140210

REACTIONS (7)
  - Fatigue [None]
  - Anxiety [None]
  - Headache [None]
  - Depression [None]
  - Pain [None]
  - Product substitution issue [None]
  - Economic problem [None]
